FAERS Safety Report 4294679-5 (Version None)
Quarter: 2004Q1

REPORT INFORMATION
  Report Type: 
  Country: None (occurrence: None)
  Receive Date: 20040213
  Receipt Date: 20031007
  Transmission Date: 20041129
  Serious: Yes (Other)
  Sender: FDA-Public Use
  Company Number: AT-BRISTOL-MYERS SQUIBB COMPANY-12413316

PATIENT
  Age: 17 Year
  Sex: Male

DRUGS (10)
  1. CYCLOPHOSPHAMIDE [Suspect]
     Indication: HAEMATOPOIETIC STEM CELL MOBILISATION
     Dates: start: 20021215, end: 20030520
  2. IFOSFAMIDE [Suspect]
     Indication: METASTASES TO SPINE
     Dates: start: 20011116, end: 20020130
  3. CISPLATIN [Suspect]
     Indication: METASTASES TO SPINE
     Dates: start: 20011116, end: 20020130
  4. VP-16 [Suspect]
     Indication: HAEMATOPOIETIC STEM CELL MOBILISATION
     Dates: start: 20011116, end: 20030822
  5. CARBOPLATIN [Suspect]
     Indication: METASTASES TO SPINE
     Dates: start: 20021215, end: 20030520
  6. MAFOSFAMIDE [Suspect]
     Indication: METASTASES TO SPINE
     Route: 042
     Dates: start: 20030807, end: 20031009
  7. RADIATION THERAPY [Suspect]
     Indication: BRAIN NEOPLASM
  8. ONDANSETRON [Concomitant]
     Indication: PREMEDICATION
     Dates: start: 20030807, end: 20031009
  9. PIRITRAMIDE [Concomitant]
     Indication: PREMEDICATION
     Dates: start: 20030807, end: 20031009
  10. DIPYRONE TAB [Concomitant]
     Indication: PREMEDICATION
     Dates: start: 20030807, end: 20031009

REACTIONS (7)
  - ACUTE MYELOID LEUKAEMIA [None]
  - INJECTION SITE PAIN [None]
  - LEUKAEMIA [None]
  - MALIGNANT NEOPLASM PROGRESSION [None]
  - METASTASES TO SPINE [None]
  - PAIN IN EXTREMITY [None]
  - SARCOMA [None]
